FAERS Safety Report 5810507-8 (Version None)
Quarter: 2008Q3

REPORT INFORMATION
  Report Type: 
  Country: None (occurrence: None)
  Receive Date: 20080715
  Receipt Date: 20080703
  Transmission Date: 20090109
  Serious: Yes (Hospitalization)
  Sender: FDA-Public Use
  Company Number: US-ELI_LILLY_AND_COMPANY-US200807000849

PATIENT
  Sex: Female
  Weight: 83.447 kg

DRUGS (6)
  1. BYETTA [Suspect]
     Indication: TYPE 2 DIABETES MELLITUS
     Dosage: 5 UG, 2/D
     Route: 058
  2. METFORMIN [Concomitant]
     Indication: TYPE 2 DIABETES MELLITUS
     Dosage: 500 MG, 2/D
  3. BENICAR [Concomitant]
     Dosage: 10 MG, EACH EVENING
  4. OXYBUTYN [Concomitant]
     Indication: BLADDER DISORDER
  5. METOPROLOL [Concomitant]
     Dosage: 25 MG, DAILY (1/D)
  6. LOVASTATIN [Concomitant]
     Dosage: 40 MG, DAILY (1/D)

REACTIONS (10)
  - AORTIC ANEURYSM [None]
  - BLOOD GLUCOSE INCREASED [None]
  - DYSPEPSIA [None]
  - FEAR OF NEEDLES [None]
  - INJECTION SITE HAEMATOMA [None]
  - NAUSEA [None]
  - STAPHYLOCOCCAL INFECTION [None]
  - STOMACH DISCOMFORT [None]
  - VOMITING [None]
  - WEIGHT DECREASED [None]
